FAERS Safety Report 10033143 (Version 2)
Quarter: 2014Q1

REPORT INFORMATION
  Report Type: Spontaneous
  Country: US (occurrence: US)
  Receive Date: 20140324
  Receipt Date: 20140324
  Transmission Date: 20141002
  Serious: Yes (Disabling)
  Sender: FDA-Public Use
  Company Number: US-GE HEALTHCARE MEDICAL DIAGNOSTICS-OSCN-PR-0712S-0480

PATIENT
  Age: 61 Year
  Sex: Female

DRUGS (7)
  1. OMNISCAN [Suspect]
     Indication: BACK PAIN
     Route: 042
     Dates: start: 20030311, end: 20030311
  2. OMNISCAN [Suspect]
     Indication: BREAST CANCER
     Route: 042
     Dates: start: 20030718, end: 20030718
  3. OMNISCAN [Suspect]
     Indication: HEADACHE
     Dates: start: 20040420, end: 20040420
  4. OMNISCAN [Suspect]
     Indication: NECK PAIN
     Route: 042
     Dates: start: 20051027, end: 20051027
  5. GADOLINIUM (UNSPECIFIED) [Suspect]
     Indication: INFARCTION
     Dates: start: 19991228, end: 19991228
  6. GADOLINIUM (UNSPECIFIED) [Suspect]
     Indication: BACK PAIN
     Dates: start: 19991229, end: 19991229
  7. EPOETIN ALFA [Concomitant]

REACTIONS (1)
  - Nephrogenic systemic fibrosis [Not Recovered/Not Resolved]
